FAERS Safety Report 7648387-0 (Version None)
Quarter: 2011Q3

REPORT INFORMATION
  Report Type: 
  Country: None (occurrence: None)
  Receive Date: 20110801
  Receipt Date: 20110721
  Transmission Date: 20111222
  Serious: Yes (Other)
  Sender: FDA-Public Use
  Company Number: CH-ASTRAZENECA-2011SE43882

PATIENT
  Age: 59 Year
  Sex: Female
  Weight: 98 kg

DRUGS (2)
  1. ANXIOLIT [Concomitant]
     Route: 048
  2. SEROQUEL [Suspect]
     Indication: AFFECTIVE DISORDER
     Route: 048
     Dates: start: 20100101

REACTIONS (3)
  - HYPOTHYROIDISM [None]
  - WEIGHT INCREASED [None]
  - OBESITY [None]
